FAERS Safety Report 4927363-2 (Version None)
Quarter: 2006Q1

REPORT INFORMATION
  Report Type: 
  Country: None (occurrence: None)
  Receive Date: 20060228
  Receipt Date: 20050923
  Transmission Date: 20060701
  Serious: No
  Sender: FDA-Public Use
  Company Number: US-GLAXOSMITHKLINE-A0575708A

PATIENT
  Age: 56 Year
  Sex: Female

DRUGS (8)
  1. IMITREX [Suspect]
     Indication: MIGRAINE
     Dosage: 1INJ AS REQUIRED
     Route: 058
  2. ZOMIG [Concomitant]
  3. CLONAZEPAM [Concomitant]
  4. AMITRIPTYLINE HCL [Concomitant]
  5. SYNTHROID [Concomitant]
  6. BUSPAR [Concomitant]
  7. DOXEPIN [Concomitant]
  8. DHEA [Concomitant]

REACTIONS (3)
  - DRUG INEFFECTIVE [None]
  - INJECTION SITE IRRITATION [None]
  - PHARMACEUTICAL PRODUCT COMPLAINT [None]
